FAERS Safety Report 9221876 (Version 1)
Quarter: 2013Q2

REPORT INFORMATION
  Report Type: Spontaneous
  Country: JP (occurrence: None)
  Receive Date: 20130408
  Receipt Date: 20130408
  Transmission Date: 20140414
  Serious: Yes (Other)
  Sender: FDA-Public Use
  Company Number: SYM-2013-02295

PATIENT
  Sex: 0

DRUGS (2)
  1. FLUOROURACIL (FLUOROURACIL) (FLUOROURACIL) [Suspect]
  2. THERAPEUTIC RADIOPHARMACEUTICALS (THERAPEUTIC RADIOPHARMACEUTICALS) [Suspect]
     Dosage: 60 GY

REACTIONS (2)
  - Pleural effusion [None]
  - Pericardial effusion [None]
